FAERS Safety Report 19739698 (Version 2)
Quarter: 2021Q3

REPORT INFORMATION
  Report Type: Spontaneous
  Country: US (occurrence: US)
  Receive Date: 20210824
  Receipt Date: 20210826
  Transmission Date: 20211014
  Serious: No
  Sender: FDA-Public Use
  Company Number: US-ORGANON-O2108USA001618

PATIENT

DRUGS (1)
  1. ASMANEX HFA [Suspect]
     Active Substance: MOMETASONE FUROATE
     Dosage: UNK (REPORTED AS 100 MCG 120 DOSE)

REACTIONS (3)
  - Product lot number issue [Unknown]
  - Product dispensing issue [Unknown]
  - Product expiration date issue [Unknown]
